FAERS Safety Report 8182710-6 (Version None)
Quarter: 2012Q1

REPORT INFORMATION
  Report Type: 
  Country: None (occurrence: None)
  Receive Date: 20120305
  Receipt Date: 20120227
  Transmission Date: 20120608
  Serious: No
  Sender: FDA-Public Use
  Company Number: US-PFIZER INC-2012034486

PATIENT
  Sex: Female

DRUGS (4)
  1. PRILOSEC [Concomitant]
     Indication: GASTROOESOPHAGEAL REFLUX DISEASE
     Dosage: UNK
  2. DILTIAZEM [Concomitant]
     Indication: HYPERTENSION
     Dosage: UNK
  3. LYRICA [Suspect]
     Dosage: UNK
     Dates: end: 20120201
  4. NEURONTIN [Concomitant]
     Indication: TRIGEMINAL NEURALGIA
     Dosage: UNK

REACTIONS (1)
  - VAGINAL ODOUR [None]
